FAERS Safety Report 21177733 (Version 1)
Quarter: 2022Q3

REPORT INFORMATION
  Report Type: Spontaneous
  Country: US (occurrence: US)
  Receive Date: 20220805
  Receipt Date: 20220805
  Transmission Date: 20221026
  Serious: No
  Sender: FDA-Public Use
  Company Number: US-Albireo AB-2022ALB000151

PATIENT
  Age: 3 Year
  Sex: Male

DRUGS (1)
  1. BYLVAY [Suspect]
     Active Substance: ODEVIXIBAT
     Indication: Progressive familial intrahepatic cholestasis
     Route: 048
     Dates: start: 20211028

REACTIONS (4)
  - Ocular icterus [Not Recovered/Not Resolved]
  - Pruritus [Unknown]
  - Blood bilirubin increased [Unknown]
  - Intentional product misuse to child [Recovered/Resolved]
